FAERS Safety Report 4963766-8 (Version None)
Quarter: 2006Q1

REPORT INFORMATION
  Report Type: 
  Country: None (occurrence: None)
  Receive Date: 20060330
  Receipt Date: 20060315
  Transmission Date: 20060701
  Serious: Yes (Other)
  Sender: FDA-Public Use
  Company Number: PAR_0566_2006

PATIENT
  Sex: Female

DRUGS (2)
  1. CAPOTEN [Suspect]
     Indication: BLOOD PRESSURE
     Dosage: 25 MG QDAY PO
     Route: 048
  2. COVERSYL /00790701/ [Suspect]
     Indication: BLOOD PRESSURE
     Dosage: 4 MG QDAY PO
     Route: 048

REACTIONS (4)
  - BLOOD PRESSURE INCREASED [None]
  - DIZZINESS [None]
  - LYMPHOCYTIC LEUKAEMIA [None]
  - MALAISE [None]
